FAERS Safety Report 12530853 (Version 1)
Quarter: 2016Q3

REPORT INFORMATION
  Report Type: Spontaneous
  Country: US (occurrence: None)
  Receive Date: 20160705
  Receipt Date: 20160705
  Transmission Date: 20161109
  Serious: Yes (Other)
  Sender: FDA-Public Use
  Company Number: None

PATIENT
  Age: 52 Year
  Sex: Male

DRUGS (2)
  1. CABERGOLINE. [Suspect]
     Active Substance: CABERGOLINE
     Indication: PITUITARY TUMOUR
     Dates: start: 20021002, end: 20100505
  2. BROMOCRIPTINE [Suspect]
     Active Substance: BROMOCRIPTINE
     Indication: PITUITARY TUMOUR
     Dates: start: 20021002, end: 20100505

REACTIONS (3)
  - Male sexual dysfunction [None]
  - Impulse-control disorder [None]
  - Gambling [None]

NARRATIVE: CASE EVENT DATE: 20021022
